FAERS Safety Report 10375561 (Version 1)
Quarter: 2014Q3

REPORT INFORMATION
  Report Type: Spontaneous
  Country: FR (occurrence: FR)
  Receive Date: 20140811
  Receipt Date: 20140811
  Transmission Date: 20150326
  Serious: Yes (Hospitalization, Other)
  Sender: FDA-Public Use
  Company Number: FR-ASTRAZENECA-2014SE56813

PATIENT
  Age: 19254 Day
  Sex: Male

DRUGS (8)
  1. LAMICTAL [Concomitant]
     Active Substance: LAMOTRIGINE
     Dates: start: 20140514
  2. VITAMIN B1 [Concomitant]
     Active Substance: THIAMINE HYDROCHLORIDE
  3. OFLOCET [Concomitant]
     Active Substance: OFLOXACIN
     Dates: start: 20140716
  4. IMOVANE [Concomitant]
     Active Substance: ZOPICLONE
     Dosage: LONG LASTING TREATMENT
  5. VITAMIN B6 [Concomitant]
     Active Substance: PYRIDOXINE HYDROCHLORIDE
  6. XEROQUEL [Suspect]
     Active Substance: QUETIAPINE FUMARATE
     Route: 048
     Dates: start: 20140715, end: 20140720
  7. TEMESTA [Concomitant]
     Active Substance: LORAZEPAM
     Dates: start: 20140715
  8. NOOTROPYL [Concomitant]
     Active Substance: PIRACETAM

REACTIONS (5)
  - Rhabdomyolysis [Recovering/Resolving]
  - Oxygen saturation decreased [Unknown]
  - Pyrexia [Unknown]
  - Dehydration [Unknown]
  - Hypernatraemia [Unknown]

NARRATIVE: CASE EVENT DATE: 20140720
